FAERS Safety Report 5022212-9 (Version None)
Quarter: 2006Q2

REPORT INFORMATION
  Report Type: 
  Country: None (occurrence: None)
  Receive Date: 20060609
  Receipt Date: 20060526
  Transmission Date: 20061013
  Serious: Yes (Other)
  Sender: FDA-Public Use
  Company Number: US-JNJFOC-20060600166

PATIENT
  Age: 17 Year
  Sex: Female

DRUGS (2)
  1. CONCERTA [Suspect]
     Indication: DRUG USE FOR UNKNOWN INDICATION
     Dosage: 27 MG OR 36 MG
     Route: 048
  2. EFFEXOR [Concomitant]

REACTIONS (2)
  - CARDIAC DISORDER [None]
  - TACHYCARDIA [None]
